FAERS Safety Report 6464141-X (Version None)
Quarter: 2009Q4

REPORT INFORMATION
  Report Type: 
  Country: None (occurrence: None)
  Receive Date: 20091201
  Receipt Date: 20091127
  Transmission Date: 20100525
  Serious: Yes (Death)
  Sender: FDA-Public Use
  Company Number: VN-ASTRAZENECA-2009SE28012

PATIENT
  Age: 52 Year
  Sex: Male
  Weight: 64 kg

DRUGS (3)
  1. MERONEM [Suspect]
     Indication: MENINGITIS BACTERIAL
     Route: 042
     Dates: start: 20091010, end: 20091015
  2. CEPHALOSPORIN [Concomitant]
     Indication: MENINGITIS BACTERIAL
     Route: 042
     Dates: start: 20091010, end: 20091020
  3. QUINOLON [Concomitant]
     Indication: MENINGITIS BACTERIAL
     Route: 042
     Dates: start: 20091010, end: 20091020

REACTIONS (1)
  - RENAL FAILURE [None]
